FAERS Safety Report 7797882-2 (Version None)
Quarter: 2011Q4

REPORT INFORMATION
  Report Type: 
  Country: None (occurrence: None)
  Receive Date: 20111005
  Receipt Date: 20110930
  Transmission Date: 20120403
  Serious: Yes (Hospitalization, Disabling, Other)
  Sender: FDA-Public Use
  Company Number: US-MERCK-1109USA00032

PATIENT
  Age: 83 Year
  Sex: Female
  Weight: 72 kg

DRUGS (9)
  1. GLYBURIDE [Concomitant]
     Route: 065
  2. JANUVIA [Suspect]
     Indication: DIABETES MELLITUS
     Route: 048
     Dates: start: 20101018
  3. VITAMINS (UNSPECIFIED) [Concomitant]
     Route: 065
  4. VENTOLIN [Concomitant]
     Route: 065
  5. JANUVIA [Suspect]
     Route: 048
     Dates: start: 20090421, end: 20101017
  6. LIBRAX [Concomitant]
     Indication: IRRITABLE BOWEL SYNDROME
     Route: 065
  7. LOVASTATIN [Concomitant]
     Indication: HYPERLIPIDAEMIA
     Route: 048
  8. AMARYL [Concomitant]
     Indication: DIABETES MELLITUS
     Route: 048
  9. ASPIRIN [Concomitant]
     Indication: CARDIOVASCULAR EVENT PROPHYLAXIS
     Route: 048

REACTIONS (3)
  - HIP FRACTURE [None]
  - BALANCE DISORDER [None]
  - FALL [None]
